FAERS Safety Report 22118413 (Version 1)
Quarter: 2023Q1

REPORT INFORMATION
  Report Type: Spontaneous
  Country: US (occurrence: US)
  Receive Date: 20230321
  Receipt Date: 20230321
  Transmission Date: 20230418
  Serious: Yes (Other)
  Sender: FDA-Public Use
  Company Number: US-AMGEN-USASP2023045419

PATIENT
  Age: 26 Year
  Sex: Male

DRUGS (2)
  1. IVABRADINE [Suspect]
     Active Substance: IVABRADINE
     Indication: Sinus tachycardia
     Dosage: UNK
     Route: 065
  2. IVABRADINE [Suspect]
     Active Substance: IVABRADINE
     Indication: Off label use

REACTIONS (3)
  - Myocarditis [Unknown]
  - Drug ineffective [Unknown]
  - Off label use [Unknown]
